FAERS Safety Report 7234161-6 (Version None)
Quarter: 2011Q1

REPORT INFORMATION
  Report Type: 
  Country: None (occurrence: None)
  Receive Date: 20110119
  Receipt Date: 20110112
  Transmission Date: 20110831
  Serious: No
  Sender: FDA-Public Use
  Company Number: US-PFIZER INC-2011008288

PATIENT
  Sex: Male
  Weight: 111 kg

DRUGS (6)
  1. ASPIRIN [Concomitant]
     Indication: CEREBROVASCULAR ACCIDENT PROPHYLAXIS
     Dosage: 81 MG, UNK
  2. LISINOPRIL [Concomitant]
     Indication: PROPHYLAXIS
     Dosage: 5 MG, UNK
  3. ASPIRIN [Concomitant]
     Indication: CARDIOVASCULAR EVENT PROPHYLAXIS
  4. LIPITOR [Suspect]
     Indication: BLOOD CHOLESTEROL INCREASED
     Dosage: 40 MG, DAILY
     Route: 048
     Dates: start: 20110107
  5. LIPITOR [Suspect]
     Indication: BLOOD TRIGLYCERIDES INCREASED
  6. METFORMIN [Concomitant]
     Indication: TYPE 2 DIABETES MELLITUS
     Dosage: 2000 MG, 1X/DAY

REACTIONS (3)
  - COUGH [None]
  - INFLUENZA [None]
  - MYALGIA [None]
